FAERS Safety Report 6053634-5 (Version None)
Quarter: 2009Q1

REPORT INFORMATION
  Report Type: 
  Country: None (occurrence: None)
  Receive Date: 20090127
  Receipt Date: 20071217
  Transmission Date: 20090719
  Serious: No
  Sender: FDA-Public Use
  Company Number: US-TEVA-165782USA

PATIENT
  Age: 51 Year
  Sex: Female

DRUGS (1)
  1. COPAXONE [Suspect]
     Indication: MULTIPLE SCLEROSIS
     Route: 058
     Dates: start: 20000601, end: 20020101

REACTIONS (4)
  - AFFECT LABILITY [None]
  - CONFUSIONAL STATE [None]
  - DISTURBANCE IN ATTENTION [None]
  - STRESS [None]
